FAERS Safety Report 16973265 (Version 1)
Quarter: 2019Q4

REPORT INFORMATION
  Report Type: Spontaneous
  Country: CA (occurrence: CA)
  Receive Date: 20191030
  Receipt Date: 20191030
  Transmission Date: 20200122
  Serious: Yes (Other)
  Sender: FDA-Public Use
  Company Number: CA-AUROBINDO-AUR-APL-2019-069063

PATIENT
  Age: 62 Year
  Sex: Female

DRUGS (1)
  1. VALSARTAN. [Suspect]
     Active Substance: VALSARTAN
     Indication: HYPERTENSION
     Dosage: 80 MILLIGRAM, ONCE A DAY
     Route: 048

REACTIONS (5)
  - Nephrectomy [Unknown]
  - Carcinogenicity [Unknown]
  - Cutaneous T-cell lymphoma [Unknown]
  - Renal cell carcinoma [Unknown]
  - Product contamination [Unknown]
